FAERS Safety Report 7138201-4 (Version None)
Quarter: 2010Q4

REPORT INFORMATION
  Report Type: 
  Country: None (occurrence: None)
  Receive Date: 20101206
  Receipt Date: 20101122
  Transmission Date: 20110411
  Serious: Yes (Death)
  Sender: FDA-Public Use
  Company Number: JP-ALLERGAN-1014684US

PATIENT
  Age: 76 Year
  Sex: Female

DRUGS (8)
  1. LUMIGAN [Suspect]
     Indication: GLAUCOMA
     Dosage: 1 GTT, QD
     Route: 047
     Dates: start: 20100713, end: 20100725
  2. BROMFENAC SODIUM [Suspect]
     Indication: CATARACT OPERATION COMPLICATION
     Dosage: 1 GTT, BID
     Route: 047
     Dates: start: 20100614, end: 20100725
  3. MOXIFLOXACIN HCL [Concomitant]
     Indication: CATARACT OPERATION COMPLICATION
     Dosage: 1 GTT, QID
     Route: 047
     Dates: start: 20100611, end: 20100725
  4. RINDERON                           /00008501/ [Concomitant]
     Indication: CATARACT OPERATION COMPLICATION
     Dosage: 1 GTT, QID
     Route: 047
     Dates: start: 20100614, end: 20100725
  5. FLOMOX [Concomitant]
     Indication: CATARACT OPERATION COMPLICATION
     Dosage: 1 DF, TID
     Route: 048
     Dates: start: 20100614, end: 20100615
  6. FLOMOX [Concomitant]
     Dosage: 1 DF, TID
     Route: 048
     Dates: start: 20100620, end: 20100621
  7. PARIET [Concomitant]
     Indication: PRODUCT USED FOR UNKNOWN INDICATION
  8. FERROMIA                           /00023516/ [Concomitant]
     Indication: PRODUCT USED FOR UNKNOWN INDICATION

REACTIONS (6)
  - ABDOMINAL PAIN [None]
  - CARDIAC ARREST [None]
  - MOUTH BREATHING [None]
  - NAUSEA [None]
  - PYREXIA [None]
  - VOMITING [None]
